FAERS Safety Report 8113114-X (Version None)
Quarter: 2012Q1

REPORT INFORMATION
  Report Type: 
  Country: None (occurrence: None)
  Receive Date: 20120131
  Receipt Date: 20120117
  Transmission Date: 20120608
  Serious: Yes (Hospitalization, Congenital Anomaly)
  Sender: FDA-Public Use
  Company Number: 1000027487

PATIENT
  Sex: Male
  Weight: 3 kg

DRUGS (1)
  1. CITALOPRAM HYDROBROMIDE [Suspect]
     Dosage: 40 MG (40 MG, 1 IN 1 D) ORAL
     Route: 048
     Dates: start: 20120103

REACTIONS (3)
  - CONGENITAL PULMONARY HYPERTENSION [None]
  - TRISOMY 21 [None]
  - MATERNAL DRUGS AFFECTING FOETUS [None]
